FAERS Safety Report 13003252 (Version 2)
Quarter: 2017Q2

REPORT INFORMATION
  Report Type: Report from Study
  Country: JP (occurrence: JP)
  Receive Date: 20161206
  Receipt Date: 20170608
  Transmission Date: 20170830
  Serious: Yes (Hospitalization)
  Sender: FDA-Public Use
  Company Number: JP-UCBSA-2016045429

PATIENT
  Age: 68 Year
  Sex: Male
  Weight: 82 kg

DRUGS (6)
  1. CERTOLIZUMAB PEGOL RA [Suspect]
     Active Substance: CERTOLIZUMAB PEGOL
     Dosage: 400 MG, EV 4 WEEKS
     Route: 058
     Dates: start: 20150206, end: 20150529
  2. BAKTAR [Concomitant]
     Active Substance: SULFAMETHOXAZOLE\TRIMETHOPRIM
     Indication: PROPHYLAXIS
     Dosage: 0.3 G DAILY
     Route: 048
     Dates: start: 20150109
  3. CERTOLIZUMAB PEGOL RA [Suspect]
     Active Substance: CERTOLIZUMAB PEGOL
     Indication: RHEUMATOID ARTHRITIS
     Dosage: 400 MG, EV 2 WEEKS(QOW)
     Route: 058
     Dates: start: 20141216, end: 20150109
  4. ALESION [Concomitant]
     Active Substance: EPINASTINE HYDROCHLORIDE
     Indication: DYSURIA
     Dosage: 20 MG DAILY
     Route: 048
     Dates: start: 20150821
  5. CERTOLIZUMAB PEGOL RA [Suspect]
     Active Substance: CERTOLIZUMAB PEGOL
     Dosage: 400 MG, EV 4 WEEKS
     Route: 058
     Dates: start: 20150626
  6. EPINASTINE. [Concomitant]
     Active Substance: EPINASTINE HYDROCHLORIDE
     Indication: PRODUCT USED FOR UNKNOWN INDICATION
     Dosage: 20 MG/DAY
     Dates: start: 20150821

REACTIONS (3)
  - Pneumonia [Recovering/Resolving]
  - Vulvovaginal inflammation [Recovered/Resolved]
  - Pharyngeal inflammation [Recovered/Resolved]

NARRATIVE: CASE EVENT DATE: 20160412
